FAERS Safety Report 9342818 (Version 1)
Quarter: 2013Q2

REPORT INFORMATION
  Report Type: Report from Study
  Country: FR (occurrence: FR)
  Receive Date: 20130611
  Receipt Date: 20130611
  Transmission Date: 20140414
  Serious: Yes (Hospitalization, Other)
  Sender: FDA-Public Use
  Company Number: FR-PFIZER INC-2013170765

PATIENT
  Age: 78 Year
  Sex: Male
  Weight: 75 kg

DRUGS (3)
  1. TORISEL [Suspect]
     Dosage: 175 MG, WEEKLY
     Dates: start: 20110523, end: 20110523
  2. TORISEL [Suspect]
     Dosage: 75 MG, WEEKLY
     Dates: start: 20110622, end: 20110706
  3. TORISEL [Suspect]
     Dosage: 75 MG, WEEKLY
     Dates: start: 20110720, end: 20120302

REACTIONS (4)
  - Staphylococcal sepsis [Recovered/Resolved]
  - Thrombocytopenia [Unknown]
  - Asthenia [Unknown]
  - Mucosal inflammation [Unknown]
